FAERS Safety Report 7799891-6 (Version None)
Quarter: 2011Q4

REPORT INFORMATION
  Report Type: 
  Country: None (occurrence: None)
  Receive Date: 20111006
  Receipt Date: 20110928
  Transmission Date: 20120403
  Serious: Yes (Other)
  Sender: FDA-Public Use
  Company Number: US-ABBOTT-11P-163-0860192-00

PATIENT
  Age: 68 Year
  Sex: Male

DRUGS (3)
  1. HUMIRA [Suspect]
     Indication: PSORIASIS
     Dates: start: 20100601
  2. AZOR [Concomitant]
     Indication: BLOOD PRESSURE
     Dosage: 10/20MG DAILY
     Route: 048
  3. BYSTOLIC [Concomitant]
     Indication: BLOOD PRESSURE
     Route: 048

REACTIONS (2)
  - DISCOMFORT [None]
  - INGUINAL HERNIA [None]
